FAERS Safety Report 6697152-X (Version None)
Quarter: 2010Q2

REPORT INFORMATION
  Report Type: 
  Country: None (occurrence: None)
  Receive Date: 20100426
  Receipt Date: 20100416
  Transmission Date: 20101027
  Serious: Yes (Other)
  Sender: FDA-Public Use
  Company Number: TW-PFIZER INC-2009177223

PATIENT
  Age: 66 Year
  Sex: Male
  Weight: 60.7 kg

DRUGS (9)
  1. IRINOTECAN HCL [Suspect]
     Indication: COLORECTAL CANCER
     Dosage: 280 MG, EVERY 2 WEEKS
     Route: 042
     Dates: start: 20080908
  2. FLUOROURACIL [Suspect]
     Indication: COLORECTAL CANCER
     Dosage: 600 MG, EVERY 2 WEEKS
     Route: 040
     Dates: start: 20080908
  3. FLUOROURACIL [Suspect]
     Dosage: 3700 MG, EVERY 2 WEEKS
     Route: 041
     Dates: start: 20080908
  4. *CALCIUM FOLINATE [Suspect]
     Indication: COLORECTAL CANCER
     Dosage: 600 MG, EVERY 2 WEEKS
     Dates: start: 20080908
  5. *PLACEBO [Suspect]
     Indication: COLORECTAL CANCER
     Dosage: 0 MG, 1X/DAY
     Route: 048
     Dates: start: 20080908
  6. PROSCAR [Concomitant]
     Indication: BENIGN PROSTATIC HYPERPLASIA
     Dosage: 5 MG, 1X/DAY
     Dates: start: 20090206
  7. AVANDIA [Concomitant]
     Indication: HYPERGLYCAEMIA
     Dosage: 4 MG, 1X/DAY
     Dates: start: 20080908
  8. GLIBEN [Concomitant]
     Indication: HYPERGLYCAEMIA
     Dosage: 5 MG, 1X/DAY
     Dates: start: 20080908
  9. TAMSULOSIN [Concomitant]
     Indication: BENIGN PROSTATIC HYPERPLASIA
     Dosage: 0.2 MG, 1X/DAY
     Dates: start: 20080908

REACTIONS (2)
  - BLOOD CHLORIDE DECREASED [None]
  - HYPONATRAEMIA [None]
